FAERS Safety Report 11813409 (Version 2)
Quarter: 2015Q4

REPORT INFORMATION
  Report Type: Spontaneous
  Country: US (occurrence: US)
  Receive Date: 20151209
  Receipt Date: 20151210
  Transmission Date: 20160305
  Serious: Yes (Life-Threatening, Hospitalization, Other)
  Sender: FDA-Public Use
  Company Number: US-WATSON-2015-27093

PATIENT
  Age: 25 Year
  Sex: Female

DRUGS (5)
  1. METOPROLOL (WATSON LABORATORIES) [Suspect]
     Active Substance: METOPROLOL
     Dosage: UNK
     Route: 065
  2. METOPROLOL (WATSON LABORATORIES) [Suspect]
     Active Substance: METOPROLOL
     Indication: TACHYCARDIA INDUCED CARDIOMYOPATHY
     Dosage: 50 MG, TOTAL
     Route: 048
  3. THIAMAZOLE [Concomitant]
     Active Substance: METHIMAZOLE
     Indication: BASEDOW^S DISEASE
     Dosage: UNK
     Route: 065
  4. LABETALOL [Suspect]
     Active Substance: LABETALOL\LABETALOL HYDROCHLORIDE
     Indication: BASEDOW^S DISEASE
     Dosage: UNK
     Route: 065
  5. METOPROLOL (WATSON LABORATORIES) [Suspect]
     Active Substance: METOPROLOL
     Indication: BASEDOW^S DISEASE
     Dosage: 10 MG, TOTAL
     Route: 042

REACTIONS (3)
  - Acute pulmonary oedema [Recovered/Resolved]
  - Cardiac arrest [Recovered/Resolved]
  - Hypotension [Recovered/Resolved]
